FAERS Safety Report 18703882 (Version 1)
Quarter: 2021Q1

REPORT INFORMATION
  Report Type: Report from Study
  Country: None (occurrence: IT)
  Receive Date: 20210106
  Receipt Date: 20210106
  Transmission Date: 20210419
  Serious: Yes (Death, Other)
  Sender: FDA-Public Use
  Company Number: IT-ABBVIE-20K-083-3674464-00

PATIENT
  Age: 73 Year
  Weight: 83 kg

DRUGS (11)
  1. ENOXAPARINA [Concomitant]
     Active Substance: ENOXAPARIN
     Indication: PROPHYLAXIS
     Route: 058
     Dates: start: 20200218, end: 20201202
  2. ALLOPURINOLO [Concomitant]
     Active Substance: ALLOPURINOL
     Indication: PROPHYLAXIS
     Route: 048
     Dates: start: 20190520, end: 20201202
  3. LATTULOSIO [Concomitant]
     Indication: CONSTIPATION
     Dosage: SUSPENSION, 3 TIMES/DAY
     Route: 048
     Dates: start: 20200218, end: 20201202
  4. CLOREXIDINA [Concomitant]
     Indication: PROPHYLAXIS
     Dosage: 3 TIMES/DAY
     Route: 048
     Dates: start: 20200218, end: 20201202
  5. LASIX [Concomitant]
     Active Substance: FUROSEMIDE
     Indication: OEDEMA
     Route: 048
     Dates: start: 20200218, end: 20201202
  6. CORDARONE [Concomitant]
     Active Substance: AMIODARONE HYDROCHLORIDE
     Indication: PRODUCT USED FOR UNKNOWN INDICATION
     Route: 048
     Dates: start: 20200226, end: 20201202
  7. VENETOCLAX. [Suspect]
     Active Substance: VENETOCLAX
     Indication: MANTLE CELL LYMPHOMA
     Route: 048
     Dates: start: 202007, end: 20201124
  8. BLOPRESS [Concomitant]
     Active Substance: CANDESARTAN CILEXETIL
     Indication: HYPERTENSION
     Route: 048
     Dates: start: 20191106, end: 20201202
  9. BACTRIM [Concomitant]
     Active Substance: SULFAMETHOXAZOLE\TRIMETHOPRIM
     Indication: PROPHYLAXIS
     Dosage: 3DAYS/WEEK
     Dates: start: 20200218, end: 20201202
  10. NISTATINA [Concomitant]
     Active Substance: NYSTATIN
     Indication: CONSTIPATION
     Dosage: SUSPENSION 3 TIMES/DAY
     Route: 048
     Dates: start: 20200218, end: 20201202
  11. TARGIN [Concomitant]
     Active Substance: NALOXONE HYDROCHLORIDE\OXYCODONE HYDROCHLORIDE
     Indication: PAIN
     Route: 048
     Dates: start: 20200213, end: 202012

REACTIONS (2)
  - Disease progression [Fatal]
  - Off label use [Recovered/Resolved]

NARRATIVE: CASE EVENT DATE: 202007
